FAERS Safety Report 14347480 (Version 1)
Quarter: 2018Q1

REPORT INFORMATION
  Report Type: Spontaneous
  Country: JP (occurrence: JP)
  Receive Date: 20180103
  Receipt Date: 20180103
  Transmission Date: 20180509
  Serious: Yes (Other)
  Sender: FDA-Public Use
  Company Number: JP-BAYER-2017-248760

PATIENT
  Sex: Female

DRUGS (1)
  1. YAZ [Suspect]
     Active Substance: DROSPIRENONE\ETHINYL ESTRADIOL
     Route: 048

REACTIONS (5)
  - Diarrhoea [None]
  - Withdrawal bleed [None]
  - Intentional product use issue [None]
  - Inappropriate schedule of drug administration [None]
  - Enterocolitis [None]

NARRATIVE: CASE EVENT DATE: 20171225
